FAERS Safety Report 11001980 (Version 1)
Quarter: 2015Q2

REPORT INFORMATION
  Report Type: Spontaneous
  Country: AR (occurrence: AR)
  Receive Date: 20150408
  Receipt Date: 20150408
  Transmission Date: 20150821
  Serious: Yes (Other)
  Sender: FDA-Public Use
  Company Number: PHHY2015AR023317

PATIENT
  Sex: Female

DRUGS (2)
  1. TEGRETOL [Suspect]
     Active Substance: CARBAMAZEPINE
     Indication: MENINGIOMA
     Dosage: 2 DF, QD
     Route: 065
     Dates: start: 2006, end: 200704
  2. TRILEPTAL [Suspect]
     Active Substance: OXCARBAZEPINE
     Indication: MENINGIOMA
     Dosage: 3 DF, QD
     Route: 065
     Dates: end: 200704

REACTIONS (4)
  - Petit mal epilepsy [Recovered/Resolved]
  - Abdominal discomfort [Unknown]
  - Product use issue [Unknown]
  - Malaise [Recovering/Resolving]

NARRATIVE: CASE EVENT DATE: 2006
